FAERS Safety Report 6879642-X (Version None)
Quarter: 2010Q3

REPORT INFORMATION
  Report Type: 
  Country: None (occurrence: None)
  Receive Date: 20100728
  Receipt Date: 20090921
  Transmission Date: 20110219
  Serious: No
  Sender: FDA-Public Use
  Company Number: US-MYLANLABS-2009S1015642

PATIENT
  Age: 58 Year
  Sex: Male

DRUGS (8)
  1. CLONIDINE HYDROCHLORIDE [Suspect]
     Indication: BLOOD PRESSURE INCREASED
     Route: 048
     Dates: start: 20090319
  2. NIFEDIAC [Concomitant]
     Indication: BLOOD PRESSURE INCREASED
     Route: 048
  3. METOPROLOL TARTRATE [Concomitant]
     Indication: BLOOD PRESSURE INCREASED
     Route: 048
  4. POTASSIUM CHLORIDE [Concomitant]
     Route: 048
  5. SODIUM BICARBONATE [Concomitant]
     Route: 048
  6. CALCITRIOL [Concomitant]
  7. COLCHICINE [Concomitant]
  8. FUROSEMIDE [Concomitant]

REACTIONS (2)
  - BLOOD PRESSURE INCREASED [None]
  - DRUG INEFFECTIVE [None]
